FAERS Safety Report 7126190-8 (Version None)
Quarter: 2010Q4

REPORT INFORMATION
  Report Type: 
  Country: None (occurrence: None)
  Receive Date: 20101129
  Receipt Date: 20101116
  Transmission Date: 20110411
  Serious: Yes (Other)
  Sender: FDA-Public Use
  Company Number: US-JNJFOC-20101106426

PATIENT
  Sex: Female
  Weight: 56.25 kg

DRUGS (4)
  1. TOPAMAX [Suspect]
     Indication: COMPLEX REGIONAL PAIN SYNDROME
     Route: 048
  2. TOPAMAX [Suspect]
     Dosage: 200 MG/ 2 AT BEDTIME
     Route: 048
  3. TOPAMAX [Suspect]
     Dosage: 200 MG/2 AT BED TIME
     Route: 048
  4. TRAZADOL [Concomitant]
     Indication: COMPLEX REGIONAL PAIN SYNDROME
     Route: 048

REACTIONS (15)
  - ADVERSE EVENT [None]
  - ASTHMA [None]
  - CONVULSION [None]
  - FAECAL INCONTINENCE [None]
  - HEADACHE [None]
  - HYPOTHALAMO-PITUITARY DISORDER [None]
  - IMPAIRED WORK ABILITY [None]
  - LOSS OF CONSCIOUSNESS [None]
  - MUSCULOSKELETAL STIFFNESS [None]
  - PHOTOPHOBIA [None]
  - PRODUCT QUALITY ISSUE [None]
  - SENSATION OF PRESSURE [None]
  - TREATMENT NONCOMPLIANCE [None]
  - URINARY INCONTINENCE [None]
  - VOMITING [None]
